FAERS Safety Report 9248012 (Version 1)
Quarter: 2013Q1

REPORT INFORMATION
  Report Type: Spontaneous
  Country: US (occurrence: None)
  Receive Date: 20130305
  Receipt Date: 20130305
  Transmission Date: 20140127
  Serious: Yes (Hospitalization)
  Sender: FDA-Public Use
  Company Number: 163-21880-12053625

PATIENT
  Age: 65 Year
  Sex: Female

DRUGS (12)
  1. REVLIMID [Suspect]
     Indication: PLASMA CELL MYELOMA
     Dosage: 1 IN 1 D
     Route: 048
     Dates: start: 201106
  2. DEXAMETHASONE(DEXAMETHASONE)(UNKNOWN) [Concomitant]
  3. DILANTIN(PHENYTOIN SODIUM)(UNKNOWN) [Concomitant]
  4. PREVACID(LANSOPRAZOLE)(UNKNOWN) [Concomitant]
  5. SEROQUEL(QUETIAPINE FUMARATE) (UNKNOWN) [Concomitant]
  6. PYRIDIUM(PHENAZOPYRIDINE HYDROCHLORIDE)(UNKNOWN) [Concomitant]
  7. PRADAXA(DABIGATRAN ETEXILATE MESILATE)(UNKNOWN) [Concomitant]
  8. POTASSIUM(POTASSIUM)(UNKNOWN) [Concomitant]
  9. VITAMIN B12(CYANOCOBALAMIN)(UNKNOWN) [Concomitant]
  10. CALCIUM(CALCIUM) (UNKNOWN) [Concomitant]
  11. TRAMADOL(TRAMADOL)(UNKNOWN) [Concomitant]
  12. ATIVAN(LORAZEPAM)(UNKNOWN) [Concomitant]

REACTIONS (1)
  - Pneumonia [None]
